FAERS Safety Report 18745904 (Version 2)
Quarter: 2021Q1

REPORT INFORMATION
  Report Type: Spontaneous
  Country: NZ (occurrence: NZ)
  Receive Date: 20210115
  Receipt Date: 20210121
  Transmission Date: 20210419
  Serious: Yes (Other)
  Sender: FDA-Public Use
  Company Number: NZ-009507513-2101NZL004907

PATIENT
  Age: 71 Year
  Sex: Male

DRUGS (2)
  1. PEMBROLIZUMAB. [Suspect]
     Active Substance: PEMBROLIZUMAB
     Indication: MESOTHELIOMA
     Dosage: UNK
  2. PEMBROLIZUMAB. [Suspect]
     Active Substance: PEMBROLIZUMAB
     Dosage: UNK, DOSE DOUBLED

REACTIONS (5)
  - Iridocyclitis [Recovered/Resolved]
  - Iridocyclitis [Unknown]
  - Off label use [Unknown]
  - Uveitis [Recovered/Resolved]
  - Cataract [Unknown]
